FAERS Safety Report 17362903 (Version 1)
Quarter: 2020Q1

REPORT INFORMATION
  Report Type: Spontaneous
  Country: PL (occurrence: PL)
  Receive Date: 20200203
  Receipt Date: 20200203
  Transmission Date: 20200409
  Serious: Yes (Life-Threatening)
  Sender: FDA-Public Use
  Company Number: PL-BAYER-2020-013325

PATIENT
  Age: 59 Year
  Sex: Female

DRUGS (1)
  1. IOPROMIDE. [Suspect]
     Active Substance: IOPROMIDE
     Indication: ANGIOCARDIOGRAM
     Dosage: UNK, ONCE

REACTIONS (5)
  - Pericardial effusion [Not Recovered/Not Resolved]
  - Contrast media reaction [Recovered/Resolved]
  - Kounis syndrome [Recovered/Resolved]
  - Left ventricle outflow tract obstruction [Recovered/Resolved]
  - Left ventricular hypertrophy [Recovered/Resolved]
